FAERS Safety Report 7640505-3 (Version None)
Quarter: 2011Q3

REPORT INFORMATION
  Report Type: 
  Country: None (occurrence: None)
  Receive Date: 20110728
  Receipt Date: 20110718
  Transmission Date: 20111222
  Serious: No
  Sender: FDA-Public Use
  Company Number: US-BIOGENIDEC-2011BI026921

PATIENT
  Sex: Female

DRUGS (2)
  1. TYSABRI [Suspect]
     Indication: MULTIPLE SCLEROSIS
     Route: 042
     Dates: start: 20100805
  2. TYSABRI [Suspect]
     Route: 042
     Dates: start: 20080506, end: 20091031

REACTIONS (3)
  - TEMPERATURE INTOLERANCE [None]
  - AMNESIA [None]
  - GAIT DISTURBANCE [None]
